FAERS Safety Report 12763334 (Version 2)
Quarter: 2016Q4

REPORT INFORMATION
  Report Type: Report from Study
  Country: AR (occurrence: AR)
  Receive Date: 20160920
  Receipt Date: 20161018
  Transmission Date: 20170207
  Serious: Yes (Other)
  Sender: FDA-Public Use
  Company Number: PHHY2016AR127718

PATIENT
  Sex: Female

DRUGS (1)
  1. ULTIBRO BREEZHALER [Suspect]
     Active Substance: GLYCOPYRRONIUM\INDACATEROL
     Indication: HYPERSENSITIVITY
     Dosage: QD
     Route: 065

REACTIONS (4)
  - Cough [Recovered/Resolved]
  - Poor quality sleep [Recovering/Resolving]
  - Cataract [Recovering/Resolving]
  - Product use issue [Unknown]
